FAERS Safety Report 25778572 (Version 1)
Quarter: 2025Q3

REPORT INFORMATION
  Report Type: Spontaneous
  Country: US (occurrence: US)
  Receive Date: 20250909
  Receipt Date: 20250909
  Transmission Date: 20251020
  Serious: Yes (Other)
  Sender: MYLAN
  Company Number: US-MYLANLABS-2025M1075770

PATIENT
  Sex: Male

DRUGS (8)
  1. FENTANYL [Suspect]
     Active Substance: FENTANYL
     Indication: Product used for unknown indication
  2. FENTANYL [Suspect]
     Active Substance: FENTANYL
     Route: 065
  3. FENTANYL [Suspect]
     Active Substance: FENTANYL
     Route: 065
  4. FENTANYL [Suspect]
     Active Substance: FENTANYL
  5. XANAX [Suspect]
     Active Substance: ALPRAZOLAM
     Indication: Product used for unknown indication
  6. XANAX [Suspect]
     Active Substance: ALPRAZOLAM
     Route: 065
  7. XANAX [Suspect]
     Active Substance: ALPRAZOLAM
     Route: 065
  8. XANAX [Suspect]
     Active Substance: ALPRAZOLAM

REACTIONS (1)
  - Drug withdrawal convulsions [Unknown]
